FAERS Safety Report 8134294-6 (Version None)
Quarter: 2012Q1

REPORT INFORMATION
  Report Type: 
  Country: None (occurrence: None)
  Receive Date: 20120208
  Receipt Date: 20120126
  Transmission Date: 20120608
  Serious: Yes (Hospitalization, Other)
  Sender: FDA-Public Use
  Company Number: KAD201201-000125

PATIENT
  Sex: Male

DRUGS (3)
  1. RIBAVIRIN [Suspect]
     Indication: HEPATITIS C
  2. DAPTOMYCIN [Suspect]
     Indication: EVIDENCE BASED TREATMENT
     Dosage: 500 MG DAILY, INTRAVENOUS
     Route: 042
  3. PEGINTERFERON ALFA-2B [Suspect]
     Indication: HEPATITIS C

REACTIONS (10)
  - RHABDOMYOLYSIS [None]
  - GENERAL PHYSICAL HEALTH DETERIORATION [None]
  - TOXICITY TO VARIOUS AGENTS [None]
  - BLOOD CREATININE INCREASED [None]
  - PLATELET COUNT DECREASED [None]
  - BLOOD LACTATE DEHYDROGENASE INCREASED [None]
  - INAPPROPRIATE SCHEDULE OF DRUG ADMINISTRATION [None]
  - STAPHYLOCOCCAL BACTERAEMIA [None]
  - NO THERAPEUTIC RESPONSE [None]
  - ABSCESS [None]
